FAERS Safety Report 23660376 (Version 1)
Quarter: 2024Q1

REPORT INFORMATION
  Report Type: Spontaneous
  Country: US (occurrence: US)
  Receive Date: 20240321
  Receipt Date: 20240321
  Transmission Date: 20240410
  Serious: Yes (Death, Hospitalization, Other)
  Sender: FDA-Public Use
  Company Number: US-ABBVIE-5687293

PATIENT
  Sex: Male

DRUGS (2)
  1. VENCLEXTA [Suspect]
     Active Substance: VENETOCLAX
     Indication: Acute myeloid leukaemia
     Route: 048
  2. AZACITIDINE [Concomitant]
     Active Substance: AZACITIDINE
     Indication: Acute myeloid leukaemia
     Route: 058

REACTIONS (28)
  - Left ventricular failure [Fatal]
  - Subclavian vein thrombosis [Unknown]
  - Dysphagia [Unknown]
  - Cerebrovascular disorder [Unknown]
  - Cerebral disorder [Unknown]
  - Jugular vein thrombosis [Unknown]
  - Acute myeloid leukaemia [Unknown]
  - Gait disturbance [Unknown]
  - Malnutrition [Unknown]
  - Myocardial infarction [Fatal]
  - Pancytopenia [Unknown]
  - Cerebrovascular accident [Unknown]
  - Embolism venous [Unknown]
  - Cerebral thrombosis [Unknown]
  - Dysphagia [Unknown]
  - Atrial fibrillation [Unknown]
  - COVID-19 [Unknown]
  - Muscular weakness [Unknown]
  - Hypertensive heart disease [Unknown]
  - Hallucination [Not Recovered/Not Resolved]
  - Metabolic encephalopathy [Unknown]
  - Cardiac failure acute [Fatal]
  - Acute respiratory failure [Unknown]
  - Deep vein thrombosis [Unknown]
  - Cardiac failure [Unknown]
  - Cardiac failure congestive [Fatal]
  - Subclavian vein embolism [Unknown]
  - Jugular vein embolism [Unknown]
